FAERS Safety Report 4624045-1 (Version None)
Quarter: 2005Q1

REPORT INFORMATION
  Report Type: 
  Country: None (occurrence: None)
  Receive Date: 20050331
  Receipt Date: 20050324
  Transmission Date: 20050727
  Serious: Yes (Hospitalization)
  Sender: FDA-Public Use
  Company Number: PHBS2005AT04211

PATIENT
  Age: 80 Year
  Sex: Female

DRUGS (2)
  1. LESCOL [Suspect]
     Dosage: 1 DF, ONCE/SINGLE
     Dates: start: 20050215, end: 20050215
  2. TRILOC [Concomitant]
     Dosage: 10 MG, UNK

REACTIONS (14)
  - ALANINE AMINOTRANSFERASE INCREASED [None]
  - ASPARTATE AMINOTRANSFERASE INCREASED [None]
  - BLOOD ALKALINE PHOSPHATASE INCREASED [None]
  - BLOOD BILIRUBIN INCREASED [None]
  - CHOLELITHIASIS [None]
  - CHOLESTASIS [None]
  - CHROMATURIA [None]
  - FAECES DISCOLOURED [None]
  - GAMMA-GLUTAMYLTRANSFERASE INCREASED [None]
  - HYDROCHOLECYSTIS [None]
  - OCULAR ICTERUS [None]
  - PANCREATIC CYST [None]
  - PRURITUS [None]
  - VOMITING [None]
